FAERS Safety Report 14660443 (Version 2)
Quarter: 2018Q1

REPORT INFORMATION
  Report Type: Spontaneous
  Country: ES (occurrence: ES)
  Receive Date: 20180320
  Receipt Date: 20180322
  Transmission Date: 20180509
  Serious: Yes (Death)
  Sender: FDA-Public Use
  Company Number: ES-PFIZER INC-2018112941

PATIENT
  Sex: Female

DRUGS (1)
  1. CARDURAN NEO [Suspect]
     Active Substance: DOXAZOSIN MESYLATE
     Dosage: UNK
     Route: 048
     Dates: start: 2011

REACTIONS (2)
  - Medication residue present [Unknown]
  - Death [Fatal]
